FAERS Safety Report 7268837 (Version 11)
Quarter: 2013Q1

REPORT INFORMATION
  Report Type: Report from Study
  Country: US (occurrence: US)
  Receive Date: 20100202
  Receipt Date: 20130205
  Transmission Date: 20140127
  Serious: Yes (Hospitalization, Other)
  Sender: FDA-Public Use
  Company Number: US-RB-001521-10

PATIENT
  Age: 49 None
  Sex: Female

DRUGS (7)
  1. SUBOXONE TABLET [Suspect]
     Indication: DRUG DEPENDENCE
     Route: 060
     Dates: start: 200910, end: 200912
  2. SUBOXONE TABLET [Suspect]
     Route: 060
     Dates: start: 200912, end: 201001
  3. SUBOXONE TABLET [Suspect]
     Route: 060
     Dates: start: 201001, end: 201001
  4. SUBOXONE TABLET [Suspect]
     Dosage: VARIOUS DOSES TAKEN
     Route: 060
     Dates: start: 201001, end: 2011
  5. SUBOXONE [Suspect]
     Indication: DRUG DEPENDENCE
     Dosage: UNKNOWN DOSE, AS REQUIRED
     Route: 060
     Dates: start: 2011
  6. KLONOPIN [Concomitant]
     Indication: ANXIETY
     Route: 065
     Dates: start: 201001
  7. REMERON [Concomitant]
     Indication: ANXIETY
     Dosage: DOSAGE DETAILS UNKNOWN
     Route: 065

REACTIONS (29)
  - Weight increased [Recovered/Resolved]
  - Tooth disorder [Not Recovered/Not Resolved]
  - Drug dependence [Recovered/Resolved]
  - Anaesthetic complication [Unknown]
  - Angina pectoris [Unknown]
  - Migraine [Unknown]
  - Nausea [Not Recovered/Not Resolved]
  - Vomiting [Not Recovered/Not Resolved]
  - Decreased appetite [Not Recovered/Not Resolved]
  - Malaise [Unknown]
  - Insomnia [Not Recovered/Not Resolved]
  - Sleep terror [Recovered/Resolved]
  - Abnormal sleep-related event [Recovered/Resolved]
  - Burnout syndrome [Not Recovered/Not Resolved]
  - Weight decreased [Not Recovered/Not Resolved]
  - Headache [Not Recovered/Not Resolved]
  - Arterial occlusive disease [Not Recovered/Not Resolved]
  - Chest discomfort [Recovered/Resolved]
  - Obstructive airways disorder [Recovered/Resolved]
  - Sunburn [Not Recovered/Not Resolved]
  - Tooth erosion [Recovered/Resolved]
  - Tooth abscess [Recovered/Resolved]
  - Anxiety [Not Recovered/Not Resolved]
  - Fear [Not Recovered/Not Resolved]
  - Herpes zoster [Not Recovered/Not Resolved]
  - Pain [Not Recovered/Not Resolved]
  - Convulsion [Recovered/Resolved]
  - Rib fracture [Not Recovered/Not Resolved]
  - Fall [Recovered/Resolved]
